FAERS Safety Report 13563071 (Version 4)
Quarter: 2019Q2

REPORT INFORMATION
  Report Type: Report from Study
  Country: US (occurrence: US)
  Receive Date: 20170519
  Receipt Date: 20190528
  Transmission Date: 20190711
  Serious: Yes (Hospitalization, Other)
  Sender: FDA-Public Use
  Company Number: PHHY2015US106976

PATIENT
  Age: 45 Year
  Sex: Female
  Weight: 111.8 kg

DRUGS (8)
  1. DULOXETINE. [Concomitant]
     Active Substance: DULOXETINE
     Indication: DEPRESSION
     Dosage: 40 MG
     Route: 065
     Dates: start: 20110425
  2. CYANOCOBALAMIN. [Concomitant]
     Active Substance: CYANOCOBALAMIN
     Indication: VITAMIN B12 DEFICIENCY
     Dosage: 1000 UG
     Route: 065
     Dates: start: 20080814
  3. SINGULAIR [Concomitant]
     Active Substance: MONTELUKAST SODIUM
     Indication: ASTHMA
     Dosage: UNK
     Route: 065
     Dates: start: 20171031
  4. GILENYA [Suspect]
     Active Substance: FINGOLIMOD HYDROCHLORIDE
     Indication: MULTIPLE SCLEROSIS
     Dosage: 0.5 MG, QD
     Route: 048
     Dates: start: 20150227
  5. VIT D [Concomitant]
     Active Substance: VITAMIN D NOS
     Indication: VITAMIN D DEFICIENCY
     Dosage: UNK
     Route: 065
     Dates: start: 20160517, end: 20171213
  6. IBUPROFEN. [Concomitant]
     Active Substance: IBUPROFEN
     Indication: BACK PAIN
     Dosage: UNK
     Route: 065
     Dates: start: 20150318
  7. PROAIR HFA [Concomitant]
     Active Substance: ALBUTEROL SULFATE
     Indication: CHRONIC OBSTRUCTIVE PULMONARY DISEASE
     Dosage: 2 PUFFS
     Route: 065
     Dates: start: 20110425
  8. TRAMADOL. [Concomitant]
     Active Substance: TRAMADOL
     Indication: BACK PAIN
     Dosage: UNK
     Route: 065
     Dates: start: 20150318

REACTIONS (23)
  - Non-cardiac chest pain [Not Recovered/Not Resolved]
  - Herpes zoster [Recovered/Resolved]
  - Oropharyngeal pain [Recovered/Resolved]
  - Sinusitis [Recovered/Resolved]
  - Aphthous ulcer [Recovered/Resolved]
  - Muscle spasms [Unknown]
  - Dyspnoea [Unknown]
  - Arthralgia [Unknown]
  - Fibromyalgia [Unknown]
  - Dyspepsia [Unknown]
  - Lumbar radiculopathy [Unknown]
  - Muscle spasms [Recovered/Resolved]
  - Arthropathy [Unknown]
  - Pain in extremity [Unknown]
  - Rhinitis allergic [Unknown]
  - Sinusitis [Recovered/Resolved]
  - Pain in extremity [Recovered/Resolved]
  - Depression [Recovered/Resolved]
  - Cellulitis [Recovered/Resolved]
  - Bronchitis [Recovered/Resolved]
  - Muscular weakness [Unknown]
  - Gastrooesophageal reflux disease [Recovered/Resolved]
  - Hypersensitivity [Unknown]

NARRATIVE: CASE EVENT DATE: 20150318
